FAERS Safety Report 14793872 (Version 1)
Quarter: 2018Q2

REPORT INFORMATION
  Report Type: Spontaneous
  Country: US (occurrence: US)
  Receive Date: 20180423
  Receipt Date: 20180423
  Transmission Date: 20180711
  Serious: No
  Sender: FDA-Public Use
  Company Number: US-GLAXOSMITHKLINE-US2018064245

PATIENT
  Age: 43 Year
  Sex: Female

DRUGS (2)
  1. ABREVA [Suspect]
     Active Substance: DOCOSANOL
     Indication: ORAL HERPES
     Dosage: UNK
  2. ABREVA [Suspect]
     Active Substance: DOCOSANOL
     Dosage: UNK

REACTIONS (5)
  - Oral pruritus [Recovered/Resolved]
  - Adverse drug reaction [Recovered/Resolved]
  - Tongue pruritus [Recovered/Resolved]
  - Mouth swelling [Recovered/Resolved]
  - Paraesthesia oral [Recovered/Resolved]
